FAERS Safety Report 9110767 (Version 1)
Quarter: 2013Q1

REPORT INFORMATION
  Report Type: Spontaneous
  Country: US (occurrence: US)
  Receive Date: 20130219
  Receipt Date: 20130219
  Transmission Date: 20140127
  Serious: No
  Sender: FDA-Public Use
  Company Number: US-BRISTOL-MYERS SQUIBB COMPANY-16560088

PATIENT
  Age: 59 Year
  Sex: Male

DRUGS (1)
  1. ORENCIA FOR INJ [Suspect]
     Indication: RHEUMATOID ARTHRITIS
     Dosage: LAST INJECTION:25APR2012. ?6 INJECTIONS
     Route: 058

REACTIONS (2)
  - Local swelling [Unknown]
  - Incorrect storage of drug [Unknown]
